FAERS Safety Report 6794594-9 (Version None)
Quarter: 2010Q2

REPORT INFORMATION
  Report Type: 
  Country: None (occurrence: None)
  Receive Date: 20100625
  Receipt Date: 20100617
  Transmission Date: 20101027
  Serious: Yes (Hospitalization)
  Sender: FDA-Public Use
  Company Number: US-JNJFOC-20100605860

PATIENT
  Sex: Male
  Weight: 84.37 kg

DRUGS (4)
  1. SANDOZ FENTANYL TRANSDERMAL SYSTEM [Suspect]
     Indication: ARTHRALGIA
     Route: 062
  2. SANDOZ FENTANYL TRANSDERMAL SYSTEM [Suspect]
     Route: 062
  3. XANAX [Concomitant]
     Indication: NERVOUS SYSTEM DISORDER
     Route: 048
  4. UNKNOWN MEDICATION [Concomitant]
     Indication: PAIN
     Route: 048

REACTIONS (3)
  - DRUG EFFECT DECREASED [None]
  - NECK INJURY [None]
  - ROAD TRAFFIC ACCIDENT [None]
